FAERS Safety Report 5503879-5 (Version None)
Quarter: 2007Q4

REPORT INFORMATION
  Report Type: 
  Country: None (occurrence: None)
  Receive Date: 20071101
  Receipt Date: 20071024
  Transmission Date: 20080405
  Serious: Yes (Death)
  Sender: FDA-Public Use
  Company Number: ZA-BRISTOL-MYERS SQUIBB COMPANY-13965645

PATIENT
  Age: 41 Year
  Sex: Female

DRUGS (1)
  1. HOLOXAN [Suspect]

REACTIONS (1)
  - PULMONARY EMBOLISM [None]
